FAERS Safety Report 7653171-8 (Version None)
Quarter: 2011Q3

REPORT INFORMATION
  Report Type: 
  Country: None (occurrence: None)
  Receive Date: 20110728
  Receipt Date: 20110721
  Transmission Date: 20111222
  Serious: Yes (Life-Threatening, Hospitalization, Other)
  Sender: FDA-Public Use
  Company Number: CL-328-2011

PATIENT
  Age: 62 Year
  Sex: Male
  Weight: 94 kg

DRUGS (4)
  1. LISINOPRIL [Concomitant]
  2. METRONIDAZOLE [Suspect]
     Indication: TOOTH ABSCESS
     Dosage: 400 MG, TID
  3. SIMVASTATIN [Concomitant]
  4. BENDROFLUAZIDE [Concomitant]

REACTIONS (1)
  - PANCREATITIS ACUTE [None]
